FAERS Safety Report 17654346 (Version 2)
Quarter: 2020Q2

REPORT INFORMATION
  Report Type: Spontaneous
  Country: ES (occurrence: ES)
  Receive Date: 20200410
  Receipt Date: 20200423
  Transmission Date: 20200713
  Serious: Yes (Life-Threatening, Hospitalization, Other)
  Sender: FDA-Public Use
  Company Number: ES-GLAXOSMITHKLINE-ES2020061331

PATIENT
  Age: 54 Year
  Sex: Female

DRUGS (8)
  1. GABAPENTINE [Interacting]
     Active Substance: GABAPENTIN
     Indication: SUICIDE ATTEMPT
     Dosage: 4050 MG, SINGLE (ONCE IN TOTAL (4050 MG))
     Route: 048
     Dates: start: 20200303, end: 20200303
  2. PROPRANOLOL [Interacting]
     Active Substance: PROPRANOLOL HYDROCHLORIDE
     Indication: SUICIDE ATTEMPT
     Dosage: 720 MG, SINGLE (ONCE IN TOTAL (720 MG))
     Route: 048
     Dates: start: 20200303, end: 20200303
  3. DIAZEPAM. [Interacting]
     Active Substance: DIAZEPAM
     Indication: SUICIDE ATTEMPT
     Dosage: 60 MG, SINGLE (ONCE IN TOTAL (60 MG))
     Route: 048
     Dates: start: 20200303, end: 20200303
  4. CLOTIAPINE [Interacting]
     Active Substance: CLOTHIAPINE
     Indication: SUICIDE ATTEMPT
     Dosage: 240 MG, SINGLE (ONCE IN TOTAL (240 MG))
     Route: 048
     Dates: start: 20200303, end: 20200303
  5. BUPROPION HYDROCHLORIDE. [Suspect]
     Active Substance: BUPROPION HYDROCHLORIDE
     Indication: SUICIDE ATTEMPT
     Dosage: 1800 MG, SINGLE , ONCE IN TOTAL (1800 MG)
     Route: 048
     Dates: start: 20200303, end: 20200303
  6. QUETIAPINE. [Interacting]
     Active Substance: QUETIAPINE
     Indication: SUICIDE ATTEMPT
     Dosage: 7200 MG, SINGLE (ONCE IN TOTAL (7200 MG))
     Route: 048
     Dates: start: 20200303, end: 20200303
  7. ZONISAMIDE. [Interacting]
     Active Substance: ZONISAMIDE
     Indication: SUICIDE ATTEMPT
     Dosage: 600 MG
     Route: 048
     Dates: start: 20200303, end: 20200303
  8. CLONAZEPAM. [Interacting]
     Active Substance: CLONAZEPAM
     Indication: SUICIDE ATTEMPT
     Dosage: 48 MG, SINGLE (ONCE IN TOTAL (48 MG))
     Route: 048
     Dates: start: 20200303, end: 20200303

REACTIONS (2)
  - Coma [Recovered/Resolved]
  - Drug interaction [Unknown]

NARRATIVE: CASE EVENT DATE: 20200303
